FAERS Safety Report 9883566 (Version 3)
Quarter: 2014Q2

REPORT INFORMATION
  Report Type: Report from Study
  Country: CH (occurrence: CH)
  Receive Date: 20140210
  Receipt Date: 20140522
  Transmission Date: 20141212
  Serious: Yes (Death, Hospitalization)
  Sender: FDA-Public Use
  Company Number: CH-ROCHE-1344218

PATIENT
  Age: 72 Year
  Sex: Male

DRUGS (1)
  1. BEVACIZUMAB [Suspect]
     Indication: GLIOBLASTOMA
     Route: 042

REACTIONS (4)
  - Pulmonary embolism [Fatal]
  - Diarrhoea [Unknown]
  - Dyspnoea [Unknown]
  - General physical health deterioration [Unknown]
